FAERS Safety Report 6748026-7 (Version None)
Quarter: 2010Q2

REPORT INFORMATION
  Report Type: 
  Country: None (occurrence: None)
  Receive Date: 20100530
  Receipt Date: 20100521
  Transmission Date: 20101027
  Serious: Yes (Hospitalization, Other)
  Sender: FDA-Public Use
  Company Number: FR-BRISTOL-MYERS SQUIBB COMPANY-15020126

PATIENT
  Age: 64 Year
  Sex: Male

DRUGS (4)
  1. CETUXIMAB [Suspect]
     Indication: HEAD AND NECK CANCER
     Dosage: RECENT INF: 18JAN2010
     Route: 042
     Dates: start: 20091130
  2. CARBOPLATIN [Suspect]
     Indication: HEAD AND NECK CANCER
     Dosage: RECENT INF: 21JAN2010
     Route: 042
     Dates: start: 20091207
  3. FLUOROURACIL [Suspect]
     Indication: HEAD AND NECK CANCER
     Dosage: RECENT INF: 21JAN2010
     Route: 042
     Dates: start: 20091207
  4. RADIOTHERAPY [Suspect]
     Indication: HEAD AND NECK CANCER
     Dosage: 1 DF: 2 GY ALSO GIVEN ON 21 + 22 JAN2010
     Dates: start: 20091207, end: 20100122

REACTIONS (2)
  - MUCOSAL INFLAMMATION [None]
  - PURPURA [None]
